FAERS Safety Report 14797556 (Version 2)
Quarter: 2018Q2

REPORT INFORMATION
  Report Type: Spontaneous
  Country: BR (occurrence: BR)
  Receive Date: 20180424
  Receipt Date: 20180531
  Transmission Date: 20180711
  Serious: Yes (Other)
  Sender: FDA-Public Use
  Company Number: BR-BIOGEN-2018BI00559595

PATIENT
  Age: 0 Day

DRUGS (2)
  1. AVONEX [Suspect]
     Active Substance: INTERFERON BETA-1A
     Indication: PATERNAL EXPOSURE TIMING UNSPECIFIED
     Route: 064
     Dates: start: 2014, end: 20180121
  2. VITAMIN D [Concomitant]
     Active Substance: CHOLECALCIFEROL
     Indication: PRODUCT USED FOR UNKNOWN INDICATION
     Route: 065

REACTIONS (2)
  - Eyelid ptosis [Unknown]
  - Paternal exposure before pregnancy [Unknown]

NARRATIVE: CASE EVENT DATE: 20160608
